FAERS Safety Report 8654853 (Version 4)
Quarter: 2012Q4

REPORT INFORMATION
  Report Type: 
  Country: JP (occurrence: JP)
  Receive Date: 20120709
  Receipt Date: 20120829
  Transmission Date: 20130627
  Serious: Yes (Other)
  Sender: FDA-Public Use
  Company Number: JP-GLAXOSMITHKLINE-B0811984A

PATIENT
  Age: 74 None
  Sex: Female

DRUGS (10)
  1. SERETIDE (50MCG/250MCG) [Suspect]
     Indication: ASTHMA
     Dosage: 500MCG Per day
     Route: 055
     Dates: end: 201206
  2. RINDERON [Concomitant]
     Indication: ASTHMA
     Route: 065
     Dates: start: 201106, end: 201205
  3. UNKNOWN DRUG [Concomitant]
     Indication: HYPERTENSION
     Route: 048
  4. UNKNOWN DRUG [Concomitant]
     Indication: ANGINA PECTORIS
     Route: 048
  5. UNKNOWN DRUG [Concomitant]
     Indication: IRRITABLE BOWEL SYNDROME
     Route: 048
  6. UNKNOWN DRUG [Concomitant]
     Indication: OSTEOPOROSIS
     Route: 048
  7. UNKNOWN DRUG [Concomitant]
     Indication: GASTROOESOPHAGEAL REFLUX DISEASE
     Route: 048
  8. PREDONINE [Concomitant]
     Indication: ARTHRALGIA
     Route: 048
  9. SYMBICORT [Concomitant]
     Indication: ASTHMA
     Route: 055
     Dates: end: 201106
  10. ANTIALLERGIC DRUG [Concomitant]
     Indication: ASTHMA
     Route: 065

REACTIONS (4)
  - Vocal cord paralysis [Recovering/Resolving]
  - Dysphonia [Unknown]
  - Throat irritation [Unknown]
  - Computerised tomogram abnormal [Unknown]
